FAERS Safety Report 6516231-0 (Version None)
Quarter: 2009Q4

REPORT INFORMATION
  Report Type: 
  Country: None (occurrence: None)
  Receive Date: 20091223
  Receipt Date: 20091215
  Transmission Date: 20100525
  Serious: Yes (Life-Threatening, Hospitalization)
  Sender: FDA-Public Use
  Company Number: FR-NOVOPROD-302242

PATIENT
  Age: 83 Year
  Sex: Female

DRUGS (14)
  1. NOVONORM [Suspect]
     Indication: TYPE 2 DIABETES MELLITUS
     Dosage: UK
  2. CORDARONE [Suspect]
     Dosage: 200 MG, QD
     Route: 048
  3. CARDENSIEL [Concomitant]
  4. COAPROVEL [Concomitant]
  5. KARDEGIC                           /00002703/ [Concomitant]
  6. DIFFU K [Concomitant]
  7. PREVISCAN                          /00261401/ [Concomitant]
  8. FUROSEMIDE [Concomitant]
  9. NOVOMIX 30 [Concomitant]
  10. CORVASAL                           /00547101/ [Concomitant]
  11. FONZYLANE [Concomitant]
  12. NOCTRAN [Concomitant]
  13. NITRODERM [Concomitant]
  14. MOPRAL                             /00661201/ [Concomitant]

REACTIONS (3)
  - CARDIAC FAILURE [None]
  - HYPERTHYROIDISM [None]
  - RENAL FAILURE [None]
